FAERS Safety Report 20750535 (Version 4)
Quarter: 2022Q4

REPORT INFORMATION
  Report Type: Report from Study
  Country: TR (occurrence: TR)
  Receive Date: 20220426
  Receipt Date: 20221101
  Transmission Date: 20230113
  Serious: Yes (Other)
  Sender: FDA-Public Use
  Company Number: TR-ABBVIE-22K-161-4370319-00

PATIENT
  Sex: Male
  Weight: 75 kg

DRUGS (7)
  1. CARBIDOPA\LEVODOPA [Suspect]
     Active Substance: CARBIDOPA\LEVODOPA
     Indication: Parkinson^s disease
     Dosage: MORNING DOSE ML: 8.00 CONTINIOUS DOSE ML: 4.50 EXTRA DOSE ML: 1.00
     Route: 050
     Dates: start: 20220322
  2. CARBIDOPA\LEVODOPA [Suspect]
     Active Substance: CARBIDOPA\LEVODOPA
  3. BENSERAZIDE HYDROCHLORIDE\LEVODOPA [Concomitant]
     Active Substance: BENSERAZIDE HYDROCHLORIDE\LEVODOPA
     Indication: Parkinson^s disease
     Dosage: FORM STRENGTH 25 MG
     Route: 048
  4. CARBIDOPA\ENTACAPONE\LEVODOPA [Concomitant]
     Active Substance: CARBIDOPA\ENTACAPONE\LEVODOPA
     Indication: Parkinson^s disease
     Dosage: 100 MILLIGRAM?FORM STRENGTH 50 MG
     Route: 048
  5. TAMSULOSIN HYDROCHLORIDE [Concomitant]
     Active Substance: TAMSULOSIN HYDROCHLORIDE
     Indication: Prostatic disorder
     Dosage: 0.4 MG
     Route: 048
  6. ATIVAN [Concomitant]
     Active Substance: LORAZEPAM
     Indication: Parkinson^s disease
     Dosage: 2 MILLIGRAM?FORM STRENGTH 1 MG
     Route: 048
  7. ENOXAPARIN SODIUM [Concomitant]
     Active Substance: ENOXAPARIN SODIUM
     Indication: Mobility decreased
     Dosage: 60 MILLIGRAM
     Route: 058
     Dates: start: 20220426, end: 20220509

REACTIONS (2)
  - Pulmonary embolism [Recovered/Resolved]
  - Movement disorder [Recovered/Resolved]
